FAERS Safety Report 9345105 (Version 1)
Quarter: 2013Q2

REPORT INFORMATION
  Report Type: Spontaneous
  Country: US (occurrence: US)
  Receive Date: 20130612
  Receipt Date: 20130612
  Transmission Date: 20140414
  Serious: Yes (Other)
  Sender: FDA-Public Use
  Company Number: US-PFIZER INC-2013173439

PATIENT
  Age: 20 Month
  Sex: Male

DRUGS (1)
  1. XYNTHA [Suspect]
     Indication: HAEMOPHILIA
     Dosage: UNK
     Dates: start: 2012

REACTIONS (1)
  - Factor VIII inhibition [Not Recovered/Not Resolved]
